FAERS Safety Report 9108302 (Version 1)
Quarter: 2013Q1

REPORT INFORMATION
  Report Type: Spontaneous
  Country: FR (occurrence: FR)
  Receive Date: 20130222
  Receipt Date: 20130222
  Transmission Date: 20140127
  Serious: Yes (Hospitalization, Other)
  Sender: FDA-Public Use
  Company Number: FR-B.I. PHARMACEUTICALS,INC./RIDGEFIELD-2013-FF-00509FF

PATIENT
  Age: 84 None
  Sex: Female

DRUGS (9)
  1. PRADAXA [Suspect]
     Indication: ATRIAL FIBRILLATION
     Dosage: 220 MG
     Route: 048
     Dates: end: 20130204
  2. LEVOTHYROX [Concomitant]
  3. KARDEGIC [Concomitant]
     Dates: end: 20130204
  4. CARDENSIEL [Concomitant]
  5. FUROSEMIDE [Concomitant]
  6. INIPOMP [Concomitant]
  7. AMIODARONE [Concomitant]
  8. AMLOR [Concomitant]
  9. LAMALINE [Concomitant]

REACTIONS (8)
  - Subdural haematoma [Unknown]
  - Gingival bleeding [Unknown]
  - Haematuria [Unknown]
  - Renal failure [Unknown]
  - General physical health deterioration [Unknown]
  - Fall [Unknown]
  - Dysarthria [Unknown]
  - Epilepsy [Unknown]
